FAERS Safety Report 22914015 (Version 3)
Quarter: 2023Q4

REPORT INFORMATION
  Report Type: Spontaneous
  Country: US (occurrence: None)
  Receive Date: 20230906
  Receipt Date: 20231010
  Transmission Date: 20240110
  Serious: No
  Sender: FDA-Public Use
  Company Number: 2023A186259

PATIENT

DRUGS (1)
  1. SYMBICORT [Suspect]
     Active Substance: BUDESONIDE\FORMOTEROL FUMARATE DIHYDRATE
     Indication: Asthma
     Dosage: 160 UG,TWO TIMES A DAY
     Route: 055
     Dates: start: 2023

REACTIONS (10)
  - Illness [Unknown]
  - Eye disorder [Unknown]
  - Product taste abnormal [Unknown]
  - Device use issue [Unknown]
  - Product dose omission issue [Unknown]
  - Product communication issue [Unknown]
  - Device malfunction [Unknown]
  - Device delivery system issue [Unknown]
  - Wrong technique in device usage process [Unknown]
  - Intentional product misuse [Unknown]
